FAERS Safety Report 4571981-0 (Version None)
Quarter: 2005Q1

REPORT INFORMATION
  Report Type: 
  Country: None (occurrence: None)
  Receive Date: 20050203
  Receipt Date: 20050203
  Transmission Date: 20050727
  Serious: Yes (Life-Threatening)
  Sender: FDA-Public Use
  Company Number: None

PATIENT
  Age: 58 Year
  Sex: Female
  Weight: 58.9676 kg

DRUGS (1)
  1. BEXTRA [Suspect]
     Indication: RHEUMATOID ARTHRITIS
     Dosage: 20 MG ORAL DAILY
     Route: 048
     Dates: start: 20021001, end: 20040801

REACTIONS (3)
  - CELLULITIS [None]
  - CEREBROVASCULAR ACCIDENT [None]
  - NECROSIS [None]
